FAERS Safety Report 6805634-2 (Version None)
Quarter: 2010Q2

REPORT INFORMATION
  Report Type: 
  Country: None (occurrence: None)
  Receive Date: 20100628
  Receipt Date: 20080327
  Transmission Date: 20101027
  Serious: Yes (Hospitalization, Other)
  Sender: FDA-Public Use
  Company Number: US-PFIZER INC-2008005670

PATIENT
  Sex: Female
  Weight: 33.6 kg

DRUGS (7)
  1. SUTENT [Suspect]
     Indication: RENAL CELL CARCINOMA
     Route: 048
     Dates: start: 20071029, end: 20071224
  2. LISINOPRIL [Concomitant]
  3. LASIX [Concomitant]
  4. ZANTAC [Concomitant]
  5. LEVOTHYROXINE SODIUM [Concomitant]
  6. CARDIZEM [Concomitant]
  7. CLONIDINE [Concomitant]

REACTIONS (7)
  - BLOOD PRESSURE INCREASED [None]
  - CONFUSIONAL STATE [None]
  - GRAND MAL CONVULSION [None]
  - MENTAL STATUS CHANGES [None]
  - PERIORBITAL OEDEMA [None]
  - REVERSIBLE POSTERIOR LEUKOENCEPHALOPATHY SYNDROME [None]
  - SINUS DISORDER [None]
